FAERS Safety Report 16741632 (Version 1)
Quarter: 2019Q3

REPORT INFORMATION
  Report Type: Spontaneous
  Country: DE (occurrence: DE)
  Receive Date: 20190826
  Receipt Date: 20190826
  Transmission Date: 20191005
  Serious: Yes (Hospitalization)
  Sender: FDA-Public Use
  Company Number: DE-TEVA-2019-DE-1096470

PATIENT
  Age: 72 Year
  Sex: Male

DRUGS (10)
  1. ETOPOSID [Suspect]
     Active Substance: ETOPOSIDE
     Dosage: NK MG, LAST ADMINISTRATION 09-DEC-2017
     Route: 065
     Dates: end: 20171209
  2. PANTOPRAZOL [Concomitant]
     Active Substance: PANTOPRAZOLE SODIUM
     Dosage: 40 MG, 1-0-1-0
  3. METOPROLOL. [Concomitant]
     Active Substance: METOPROLOL
     Dosage: 95 MG, 1-0-1-0
  4. OXYCODON [Concomitant]
     Active Substance: OXYCODONE
     Dosage: 10 MG, 1-0-1-0
  5. CARBOPLATIN. [Suspect]
     Active Substance: CARBOPLATIN
     Dosage: NK MG
     Route: 065
  6. RAMIPRIL. [Concomitant]
     Active Substance: RAMIPRIL
     Dosage: 5 MG, 0-0-0.5-0
  7. TEPILTA BEUTEL [Concomitant]
     Dosage: 582/196/ 20 MG, 1-1-1-1
  8. SIMVASTATIN. [Concomitant]
     Active Substance: SIMVASTATIN
     Dosage: 20 MG, 0-0-1-0
  9. INSULIN GLULISIN [Concomitant]
     Active Substance: INSULIN GLULISINE
     Dosage: NK IE, ACCORDING TO PATIENT SCHEME
  10. TOREM 10 [Concomitant]
     Active Substance: TORSEMIDE
     Dosage: 10 MG, 1-0-0-0

REACTIONS (3)
  - Cough [Unknown]
  - Chills [Unknown]
  - Pyrexia [Unknown]
